FAERS Safety Report 5520600-5 (Version None)
Quarter: 2007Q4

REPORT INFORMATION
  Report Type: 
  Country: None (occurrence: None)
  Receive Date: 20071119
  Receipt Date: 20071003
  Transmission Date: 20080405
  Serious: Yes (Disabling, Other)
  Sender: FDA-Public Use
  Company Number: US-BRISTOL-MYERS SQUIBB COMPANY-13975230

PATIENT
  Age: 40 Year
  Sex: Male

DRUGS (10)
  1. EFAVIRENZ [Suspect]
     Indication: HIV INFECTION
     Dates: start: 19990101
  2. DIDANOSINE [Suspect]
     Dates: start: 19990101
  3. DIDANOSINE [Suspect]
     Dates: start: 19990101
  4. STAVUDINE [Suspect]
  5. ABACAVIR [Suspect]
  6. LAMIVUDINE [Suspect]
  7. TENOFOVIR DISOPROXIL FUMARATE [Suspect]
  8. INSULIN [Concomitant]
     Dates: start: 19990101
  9. INSULIN HUMAN [Concomitant]
  10. SAQUINAVIR [Concomitant]

REACTIONS (5)
  - LIPODYSTROPHY ACQUIRED [None]
  - METABOLIC SYNDROME [None]
  - OFF LABEL USE [None]
  - TYPE 1 DIABETES MELLITUS [None]
  - TYPE 2 DIABETES MELLITUS [None]
